FAERS Safety Report 7997772-6 (Version None)
Quarter: 2011Q4

REPORT INFORMATION
  Report Type: 
  Country: None (occurrence: None)
  Receive Date: 20111221
  Receipt Date: 20110823
  Transmission Date: 20120403
  Serious: No
  Sender: FDA-Public Use
  Company Number: US-PFIZER INC-K201100981

PATIENT
  Sex: Female

DRUGS (1)
  1. EPIPEN [Suspect]
     Indication: ARTHROPOD STING
     Dosage: 0.3 MG, SINGLE
     Route: 030
     Dates: start: 20110813, end: 20110813

REACTIONS (6)
  - SENSATION OF HEAVINESS [None]
  - NERVOUSNESS [None]
  - TREMOR [None]
  - HEART RATE INCREASED [None]
  - DIZZINESS [None]
  - ASTHENIA [None]
